FAERS Safety Report 8572635-6 (Version None)
Quarter: 2012Q3

REPORT INFORMATION
  Report Type: 
  Country: None (occurrence: None)
  Receive Date: 20120806
  Receipt Date: 20120731
  Transmission Date: 20120928
  Serious: Yes (Other)
  Sender: FDA-Public Use
  Company Number: CA-GLAXOSMITHKLINE-A0987798A

PATIENT
  Sex: Male
  Weight: 79.5 kg

DRUGS (15)
  1. GSK2110183 [Suspect]
     Indication: CHRONIC LYMPHOCYTIC LEUKAEMIA
     Route: 048
     Dates: start: 20120507
  2. PRBC [Concomitant]
     Indication: ANAEMIA
     Dosage: 2UNIT SINGLE DOSE
     Route: 042
     Dates: start: 20120501
  3. BENADRYL [Concomitant]
     Indication: INFUSION RELATED REACTION
     Dosage: 50MG SINGLE DOSE
     Route: 042
     Dates: start: 20120501
  4. DEMEROL [Concomitant]
     Indication: INFUSION RELATED REACTION
     Dosage: 25MG SINGLE DOSE
     Route: 042
     Dates: start: 20120501
  5. CHOP CHEMOTHERAPY [Concomitant]
     Indication: CHRONIC LYMPHOCYTIC LEUKAEMIA
     Dates: start: 20100101, end: 20120401
  6. MULTI-VITAMIN [Concomitant]
     Indication: SUPPLEMENTATION THERAPY
     Dosage: 1TAB PER DAY
     Route: 048
     Dates: start: 20110101
  7. GRAVOL TAB [Concomitant]
     Indication: INFUSION RELATED REACTION
     Dosage: 50MG SINGLE DOSE
     Route: 042
     Dates: start: 20120501
  8. OFATUMUMAB [Suspect]
     Indication: CHRONIC LYMPHOCYTIC LEUKAEMIA
     Dates: start: 20120517
  9. VITAMIN B COMPLEX CAP [Concomitant]
     Indication: SUPPLEMENTATION THERAPY
     Dosage: 1TAB PER DAY
     Route: 048
     Dates: start: 20110101
  10. RITUXIMAB [Concomitant]
     Indication: CHRONIC LYMPHOCYTIC LEUKAEMIA
     Dates: start: 20100101, end: 20120401
  11. SOLU-CORTEF [Concomitant]
     Indication: INFUSION RELATED REACTION
     Dosage: 100MG SINGLE DOSE
     Route: 042
     Dates: start: 20120501
  12. ALLOPURINOL [Concomitant]
     Dosage: 300MG PER DAY
     Route: 048
     Dates: start: 20100501
  13. MEPERIDINE HCL [Concomitant]
     Indication: INFUSION RELATED REACTION
     Route: 042
     Dates: start: 20120501
  14. RANITIDINE [Concomitant]
     Indication: PROPHYLAXIS
     Dosage: 150MG TWICE PER DAY
     Route: 048
     Dates: start: 20120501
  15. DECADRON PHOSPHATE [Concomitant]
     Indication: PROPHYLAXIS
     Dosage: 20MG PER DAY
     Route: 048
     Dates: start: 20120501

REACTIONS (1)
  - SQUAMOUS CELL CARCINOMA [None]
